FAERS Safety Report 7007755-0 (Version None)
Quarter: 2010Q3

REPORT INFORMATION
  Report Type: 
  Country: None (occurrence: None)
  Receive Date: 20100922
  Receipt Date: 20100909
  Transmission Date: 20110219
  Serious: No
  Sender: FDA-Public Use
  Company Number: US-B.I. PHARMACEUTICALS,INC./RIDGEFIELD-2010-BP-10300BP

PATIENT
  Sex: Female

DRUGS (3)
  1. SPIRIVA [Suspect]
     Route: 055
     Dates: start: 20080101
  2. COMBIVENT [Concomitant]
     Indication: DYSPNOEA
  3. FORADIL [Concomitant]
     Indication: DYSPNOEA

REACTIONS (1)
  - EYE PAIN [None]
